FAERS Safety Report 5059508-0 (Version None)
Quarter: 2006Q3

REPORT INFORMATION
  Report Type: 
  Country: None (occurrence: None)
  Receive Date: 20060724
  Receipt Date: 20050615
  Transmission Date: 20061208
  Serious: No
  Sender: FDA-Public Use
  Company Number: US-AMGEN-KDL139283

PATIENT
  Sex: Male

DRUGS (3)
  1. PROCRIT [Suspect]
     Indication: ANAEMIA OF MALIGNANT DISEASE
     Route: 058
     Dates: start: 20041201
  2. MEDICINALPRODUCT NOT SPECIFIED BY SENDER [Concomitant]
     Route: 058
  3. MEDICINALPRODUCT NOT SPECIFIED BY SENDER [Concomitant]

REACTIONS (2)
  - DIARRHOEA [None]
  - POLLAKIURIA [None]
